FAERS Safety Report 9927784 (Version 1)
Quarter: 2014Q1

REPORT INFORMATION
  Report Type: Report from Study
  Country: US (occurrence: US)
  Receive Date: 20140227
  Receipt Date: 20140227
  Transmission Date: 20141002
  Serious: Yes (Other)
  Sender: FDA-Public Use
  Company Number: US-ROCHE-1330390

PATIENT
  Sex: Female

DRUGS (9)
  1. LUCENTIS [Suspect]
     Indication: RETINAL OEDEMA
     Route: 050
  2. AVASTIN [Suspect]
     Indication: PRODUCT USED FOR UNKNOWN INDICATION
     Route: 050
  3. ENALAPRIL MALEATE [Concomitant]
     Route: 048
  4. GLIMEPIRIDE [Concomitant]
     Route: 048
  5. METFORMIN [Concomitant]
     Route: 048
  6. ACETAZOLAMIDE [Concomitant]
     Route: 048
  7. ALPHAGAN [Concomitant]
     Dosage: 1 DROP BID RIGHT EYE
     Route: 065
  8. BETIMOL [Concomitant]
     Dosage: 1 DROP BID RIGHT EYE
     Route: 065
  9. LUMIGAN [Concomitant]
     Dosage: 1 DROP QHS BOTH EYES
     Route: 065

REACTIONS (10)
  - Iridocyclitis [Unknown]
  - Macular oedema [Unknown]
  - Tunnel vision [Unknown]
  - Posterior capsule opacification [Unknown]
  - Eyelid pain [Unknown]
  - Retinal exudates [Unknown]
  - Cataract [Unknown]
  - Accommodation disorder [Unknown]
  - Intraocular lens implant [Unknown]
  - Retinal detachment [Unknown]
